FAERS Safety Report 9404420 (Version 2)
Quarter: 2013Q3

REPORT INFORMATION
  Report Type: Spontaneous
  Country: US (occurrence: None)
  Receive Date: 20130711
  Receipt Date: 20130823
  Transmission Date: 20140515
  Serious: Yes (Death, Hospitalization, Other)
  Sender: FDA-Public Use
  Company Number: CL-504-2013

PATIENT
  Age: 77 Year
  Sex: Male

DRUGS (2)
  1. METRONIDAZOLE [Suspect]
     Indication: GASTRIC CANCER
  2. METRONIDAZOLE [Suspect]
     Indication: CLOSTRIDIUM COLITIS

REACTIONS (2)
  - Gastroenteritis [None]
  - Eosinophilia [None]
